FAERS Safety Report 19574069 (Version 24)
Quarter: 2023Q4

REPORT INFORMATION
  Report Type: Report from Study
  Country: JP (occurrence: JP)
  Receive Date: 20210718
  Receipt Date: 20231023
  Transmission Date: 20240110
  Serious: Yes (Other)
  Sender: FDA-Public Use
  Company Number: JP-TAKEDA-2021TJP057827

PATIENT
  Sex: Female

DRUGS (10)
  1. ICATIBANT [Suspect]
     Active Substance: ICATIBANT ACETATE
     Indication: Hereditary angioedema
     Dosage: 30 MILLIGRAM, PRN
     Route: 058
     Dates: start: 2018
  2. ICATIBANT [Suspect]
     Active Substance: ICATIBANT ACETATE
     Indication: Hereditary angioedema
     Dosage: 30 MILLIGRAM, PRN
     Route: 058
     Dates: start: 2018
  3. MODERNA COVID-19 VACCINE [Suspect]
     Active Substance: ELASOMERAN
     Indication: COVID-19 immunisation
     Dosage: 1 DOSAGE FORM, FOURTH DOSE
     Route: 030
     Dates: start: 20220904
  4. NEXIUM [Concomitant]
     Active Substance: ESOMEPRAZOLE MAGNESIUM
     Indication: Gastrooesophageal reflux disease
     Dosage: UNK
     Route: 048
  5. ORLADEYO [Concomitant]
     Active Substance: BEROTRALSTAT HYDROCHLORIDE
     Indication: Gastrooesophageal reflux disease
     Dosage: UNK
     Route: 048
     Dates: start: 202104
  6. COMIRNATY (TOZINAMERAN) [Concomitant]
     Active Substance: TOZINAMERAN
     Indication: COVID-19 immunisation
     Dosage: FIRST DOSE
     Route: 030
     Dates: start: 202105, end: 202105
  7. COMIRNATY (TOZINAMERAN) [Concomitant]
     Active Substance: TOZINAMERAN
     Dosage: SECOND DOSE
     Route: 030
     Dates: start: 202105, end: 202105
  8. COMIRNATY (TOZINAMERAN) [Concomitant]
     Active Substance: TOZINAMERAN
     Dosage: THIRD DOSE
     Route: 030
     Dates: start: 20220204, end: 20220204
  9. BERINERT P [Concomitant]
     Active Substance: HUMAN C1-ESTERASE INHIBITOR
     Dosage: UNK UNK, PRN
  10. INFLUENZA VIRUS VACCINE [Concomitant]
     Active Substance: INFLUENZA VIRUS VACCINE
     Indication: Immunisation
     Route: 065

REACTIONS (82)
  - Deafness unilateral [Recovering/Resolving]
  - Brain neoplasm [Unknown]
  - Laryngeal oedema [Recovered/Resolved]
  - Abdominal pain [Recovering/Resolving]
  - Malaise [Recovered/Resolved]
  - Headache [Recovered/Resolved]
  - Erythema annulare [Recovering/Resolving]
  - Product administered by wrong person [Unknown]
  - Vaccination site reaction [Recovering/Resolving]
  - Headache [Recovering/Resolving]
  - Pyrexia [Recovering/Resolving]
  - Malaise [Recovering/Resolving]
  - Headache [Recovering/Resolving]
  - Erythema annulare [Recovering/Resolving]
  - Dyspnoea [Recovering/Resolving]
  - Erythema annulare [Recovering/Resolving]
  - Hereditary angioedema [Unknown]
  - Abdominal pain [Unknown]
  - Diarrhoea [Unknown]
  - Fatigue [Unknown]
  - Depressed mood [Unknown]
  - Oedema [Unknown]
  - Malaise [Unknown]
  - Erythema annulare [Unknown]
  - Abdominal pain [Recovering/Resolving]
  - Abdominal distension [Recovering/Resolving]
  - Headache [Recovering/Resolving]
  - Dyspnoea [Recovering/Resolving]
  - Hyperventilation [Recovering/Resolving]
  - Dysstasia [Recovering/Resolving]
  - Erythema annulare [Unknown]
  - Physical deconditioning [Unknown]
  - Dizziness [Unknown]
  - Vaccination site swelling [Unknown]
  - Abdominal symptom [Unknown]
  - Diarrhoea [Unknown]
  - Abdominal pain [Unknown]
  - Tension headache [Unknown]
  - Insomnia [Unknown]
  - Carpal tunnel syndrome [Unknown]
  - Dysphagia [Unknown]
  - Odynophagia [Unknown]
  - Throat irritation [Unknown]
  - Blood pressure increased [Unknown]
  - Blood cholesterol increased [Unknown]
  - Hypoaesthesia [Unknown]
  - Constipation [Unknown]
  - Blood pressure decreased [Unknown]
  - Immunisation reaction [Unknown]
  - Feeling cold [Unknown]
  - Stomatitis [Unknown]
  - Tongue movement disturbance [Unknown]
  - Malaise [Recovered/Resolved]
  - Nightmare [Unknown]
  - Musculoskeletal stiffness [Recovering/Resolving]
  - Bone pain [Unknown]
  - Dysuria [Unknown]
  - Cystitis [Unknown]
  - Abdominal discomfort [Unknown]
  - Musculoskeletal pain [Unknown]
  - Laryngeal discomfort [Unknown]
  - Eyelid irritation [Unknown]
  - Tinnitus [Unknown]
  - Heat illness [Unknown]
  - Anxiety [Unknown]
  - COVID-19 [Unknown]
  - Olfactory dysfunction [Recovering/Resolving]
  - Taste disorder [Unknown]
  - Rash pruritic [Unknown]
  - Limb discomfort [Unknown]
  - Malaise [Unknown]
  - Pyrexia [Unknown]
  - Spinal column injury [Not Recovered/Not Resolved]
  - Pain [Unknown]
  - Oedema peripheral [Unknown]
  - Constipation [Unknown]
  - Urine output decreased [Recovering/Resolving]
  - Somnolence [Not Recovered/Not Resolved]
  - Malaise [Unknown]
  - Seasonal allergy [Unknown]
  - Hypoaesthesia [Unknown]
  - Physical deconditioning [Unknown]

NARRATIVE: CASE EVENT DATE: 20190101
